FAERS Safety Report 11399821 (Version 1)
Quarter: 2015Q3

REPORT INFORMATION
  Report Type: Spontaneous
  Country: US (occurrence: None)
  Receive Date: 20150818
  Receipt Date: 20150818
  Transmission Date: 20151125
  Serious: Yes (Other)
  Sender: FDA-Public Use
  Company Number: None

PATIENT
  Age: 70 Year
  Sex: Female

DRUGS (13)
  1. HYDROCHLOROTHIAZIDE. [Suspect]
     Active Substance: HYDROCHLOROTHIAZIDE
     Indication: HYPERTENSION
     Route: 048
     Dates: end: 20150808
  2. CALCIUM CARBONATE (CALCIUM) [Concomitant]
  3. HYDROCHLOROTHIAZIDE. [Concomitant]
     Active Substance: HYDROCHLOROTHIAZIDE
  4. HYDROCODONE-ACETAMINOPHEN (NORCO) [Concomitant]
  5. MOBIC [Concomitant]
     Active Substance: MELOXICAM
  6. METOPROLOL-XL (TOPROL-XL) [Concomitant]
  7. AMLODIPINE (NORVASC) [Concomitant]
  8. BISACODYL (DULCOLAX) [Concomitant]
  9. ASA [Concomitant]
     Active Substance: ASPIRIN
  10. TRAMADOL (ULTRAM) [Concomitant]
  11. ERGOCALCIFEROL (VITAMIN D2) (VITAMIN D) [Concomitant]
  12. ESCITALOPRAM OXALATE (LEXAPRO) [Concomitant]
  13. FAMOTIDINE (PEPCID) [Concomitant]

REACTIONS (11)
  - Liver disorder [None]
  - Product commingling [None]
  - Increased tendency to bruise [None]
  - Haematoma [None]
  - Protein total abnormal [None]
  - Drug administration error [None]
  - Epistaxis [None]
  - Accidental exposure to product [None]
  - Goodpasture^s syndrome [None]
  - Ecchymosis [None]
  - Platelet function test abnormal [None]

NARRATIVE: CASE EVENT DATE: 20150812
